FAERS Safety Report 14637535 (Version 1)
Quarter: 2018Q1

REPORT INFORMATION
  Report Type: Spontaneous
  Country: US (occurrence: US)
  Receive Date: 20180314
  Receipt Date: 20180314
  Transmission Date: 20180509
  Serious: Yes (Other)
  Sender: FDA-Public Use
  Company Number: US-PFIZER INC-2018100533

PATIENT
  Age: 45 Year
  Sex: Male
  Weight: 117.9 kg

DRUGS (14)
  1. POTASSIUM [Concomitant]
     Active Substance: POTASSIUM
     Indication: SUPPLEMENTATION THERAPY
     Dosage: UNK
  2. ASPIRIN /00002701/ [Concomitant]
     Active Substance: ASPIRIN
     Indication: ANTICOAGULANT THERAPY
     Dosage: UNK
  3. OXYCODONE [Concomitant]
     Active Substance: OXYCODONE
     Indication: PAIN
     Dosage: UNK
  4. SOMAVERT [Suspect]
     Active Substance: PEGVISOMANT
     Dosage: UNK, DAILY (2 INJECTIONS DAILY)
  5. SOMAVERT [Suspect]
     Active Substance: PEGVISOMANT
     Dosage: UNK
     Dates: start: 20180306
  6. VITAMIN D /00107901/ [Concomitant]
     Active Substance: ERGOCALCIFEROL
     Indication: SUPPLEMENTATION THERAPY
     Dosage: UNK
  7. VITAMIN C [Concomitant]
     Active Substance: ASCORBIC ACID
     Indication: SUPPLEMENTATION THERAPY
     Dosage: UNK
  8. SOMAVERT [Suspect]
     Active Substance: PEGVISOMANT
     Indication: GROWTH HORMONE-PRODUCING PITUITARY TUMOUR
     Dosage: 20 MG, DAILY
     Dates: start: 201710
  9. CORTISOL [Concomitant]
     Active Substance: HYDROCORTISONE
     Dosage: UNK
  10. MELOXICAM. [Concomitant]
     Active Substance: MELOXICAM
     Indication: ANTICOAGULANT THERAPY
     Dosage: UNK
  11. HEPARIN [Concomitant]
     Active Substance: HEPARIN SODIUM
     Indication: ANTICOAGULANT THERAPY
     Dosage: UNK
  12. SOMAVERT [Suspect]
     Active Substance: PEGVISOMANT
     Indication: ACROMEGALY
     Dosage: 20 MG, DAILY
     Dates: start: 201709
  13. SOMAVERT [Suspect]
     Active Substance: PEGVISOMANT
     Dosage: UNK (TAKING A HALF DOSE)
  14. TYLENOL [Concomitant]
     Active Substance: ACETAMINOPHEN
     Indication: PAIN
     Dosage: UNK

REACTIONS (7)
  - Cerebrovascular accident [Unknown]
  - Intentional product misuse [Unknown]
  - Migraine [Unknown]
  - Amnesia [Unknown]
  - Wrong technique in product usage process [Unknown]
  - Photophobia [Unknown]
  - Balance disorder [Unknown]
